FAERS Safety Report 5798288-8 (Version None)
Quarter: 2008Q3

REPORT INFORMATION
  Report Type: 
  Country: None (occurrence: None)
  Receive Date: 20080701
  Receipt Date: 20080623
  Transmission Date: 20090109
  Serious: Yes (Death, Other)
  Sender: FDA-Public Use
  Company Number: APP200800557

PATIENT
  Sex: Female

DRUGS (2)
  1. HEPARIN SODIUM INJECTION [Suspect]
     Indication: HAEMODIALYSIS
  2. DIGOXIN [Concomitant]

REACTIONS (6)
  - ANAPHYLACTOID REACTION [None]
  - DYSPHONIA [None]
  - HYPOTENSION [None]
  - THERAPEUTIC AGENT TOXICITY [None]
  - VENTRICULAR FIBRILLATION [None]
  - VENTRICULAR TACHYCARDIA [None]
